FAERS Safety Report 10524213 (Version 1)
Quarter: 2014Q4

REPORT INFORMATION
  Report Type: Spontaneous
  Country: AT (occurrence: AT)
  Receive Date: 20141017
  Receipt Date: 20141017
  Transmission Date: 20150528
  Serious: Yes (Other)
  Sender: FDA-Public Use
  Company Number: AT-ELI_LILLY_AND_COMPANY-AT201410002289

PATIENT
  Age: 36 Year
  Sex: Male
  Weight: 89 kg

DRUGS (5)
  1. ABILIFY [Suspect]
     Active Substance: ARIPIPRAZOLE
     Dosage: UNK, UNKNOWN
     Route: 030
     Dates: start: 20140904
  2. ZYPREXA [Suspect]
     Active Substance: OLANZAPINE
     Indication: DELUSIONAL DISORDER, UNSPECIFIED TYPE
     Dosage: UNK UNK, UNKNOWN
     Route: 065
     Dates: start: 200812
  3. PRAXITEN [Concomitant]
     Active Substance: OXAZEPAM
     Indication: PRODUCT USED FOR UNKNOWN INDICATION
     Dosage: UNK, UNKNOWN
     Route: 065
  4. ABILIFY [Suspect]
     Active Substance: ARIPIPRAZOLE
     Indication: PRODUCT USED FOR UNKNOWN INDICATION
     Dosage: 25 MG, UNKNOWN
     Route: 065
     Dates: start: 20140825
  5. TEMESTA                            /00273201/ [Concomitant]
     Active Substance: LORAZEPAM
     Indication: PRODUCT USED FOR UNKNOWN INDICATION
     Dosage: UNK, UNKNOWN
     Route: 065

REACTIONS (17)
  - Psychotic disorder [Recovered/Resolved]
  - Agitation [Recovered/Resolved]
  - Dry mouth [Recovered/Resolved]
  - Anxiety [Recovered/Resolved]
  - Glutamate dehydrogenase increased [Unknown]
  - Blood creatine phosphokinase increased [Unknown]
  - Sleep disorder [Recovered/Resolved]
  - Insomnia [Recovered/Resolved]
  - Muscle twitching [Recovered/Resolved]
  - Hyperhidrosis [Recovered/Resolved]
  - Fear [Recovered/Resolved]
  - Diarrhoea [Recovered/Resolved]
  - Apathy [Recovered/Resolved]
  - Tachycardia [Recovered/Resolved]
  - Blood cholesterol increased [Unknown]
  - Dyspepsia [Recovered/Resolved]
  - Vision blurred [Recovered/Resolved]

NARRATIVE: CASE EVENT DATE: 20140911
